FAERS Safety Report 18739831 (Version 1)
Quarter: 2021Q1

REPORT INFORMATION
  Report Type: Spontaneous
  Country: US (occurrence: US)
  Receive Date: 20210113
  Receipt Date: 20210113
  Transmission Date: 20210419
  Serious: Yes (Hospitalization, Disabling)
  Sender: FDA-Public Use
  Company Number: None

PATIENT
  Age: 55 Year
  Sex: Female
  Weight: 53.1 kg

DRUGS (2)
  1. LORAZEPAM. [Suspect]
     Active Substance: LORAZEPAM
     Indication: VERTIGO
     Dosage: ?          QUANTITY:1 TABLET(S);?
     Route: 048
     Dates: start: 20151012
  2. DIAZEPAM. [Suspect]
     Active Substance: DIAZEPAM

REACTIONS (20)
  - Tinnitus [None]
  - Sleep disorder [None]
  - Dizziness [None]
  - Drug dependence [None]
  - Nausea [None]
  - Muscular weakness [None]
  - Vision blurred [None]
  - Muscle spasms [None]
  - Hyperacusis [None]
  - Oral discomfort [None]
  - Migraine with aura [None]
  - Vertigo [None]
  - Musculoskeletal stiffness [None]
  - Tongue discomfort [None]
  - Withdrawal syndrome [None]
  - Insomnia [None]
  - Nuchal rigidity [None]
  - Headache [None]
  - Anxiety [None]
  - Myalgia [None]

NARRATIVE: CASE EVENT DATE: 20151022
